FAERS Safety Report 10017962 (Version 1)
Quarter: 2014Q1

REPORT INFORMATION
  Report Type: Spontaneous
  Country: US (occurrence: None)
  Receive Date: 20140312
  Receipt Date: 20140312
  Transmission Date: 20141002
  Serious: Yes (Other)
  Sender: FDA-Public Use
  Company Number: UTC-045687

PATIENT
  Age: 50 Year
  Sex: Female

DRUGS (1)
  1. TREPROSTINIL [Suspect]
     Indication: PULMONARY ARTERIAL HYPERTENSION

REACTIONS (2)
  - Atrial septal defect acquired [None]
  - Adverse drug reaction [None]
